FAERS Safety Report 15117749 (Version 15)
Quarter: 2020Q2

REPORT INFORMATION
  Report Type: Report from Study
  Country: US (occurrence: US)
  Receive Date: 20180706
  Receipt Date: 20200604
  Transmission Date: 20200713
  Serious: Yes (Death, Hospitalization, Other)
  Sender: FDA-Public Use
  Company Number: US-ACTELION-A-US2015-118422

PATIENT
  Age: 57 Year
  Sex: Female
  Weight: 44.9 kg

DRUGS (12)
  1. VELETRI [Suspect]
     Active Substance: EPOPROSTENOL
     Dosage: 21 NG/KG, PER MIN
     Route: 042
  2. VELETRI [Suspect]
     Active Substance: EPOPROSTENOL
     Dosage: 19 NG/KG, PER MIN
     Route: 042
  3. VELETRI [Suspect]
     Active Substance: EPOPROSTENOL
     Dosage: 21 NG/KG, PER MIN
     Route: 042
  4. SILDENAFIL. [Concomitant]
     Active Substance: SILDENAFIL
  5. VELETRI [Suspect]
     Active Substance: EPOPROSTENOL
     Dosage: 11 NG/KG, PER MIN
     Route: 042
     Dates: start: 20150504
  6. ADCIRCA [Concomitant]
     Active Substance: TADALAFIL
  7. POTASSIUM [Concomitant]
     Active Substance: POTASSIUM
  8. VELETRI [Suspect]
     Active Substance: EPOPROSTENOL
     Indication: PULMONARY HYPERTENSION
     Dosage: 21 NG/KG, PER MIN
     Route: 042
  9. CYTOXAN [Suspect]
     Active Substance: CYCLOPHOSPHAMIDE
     Indication: PRODUCT USED FOR UNKNOWN INDICATION
     Route: 065
  10. VITAMIN D3 [Concomitant]
     Active Substance: CHOLECALCIFEROL
     Dosage: 10000 IU
  11. VELETRI [Suspect]
     Active Substance: EPOPROSTENOL
     Dosage: 19 NG/KG, PER MIN
     Route: 042
  12. IRON [Concomitant]
     Active Substance: IRON

REACTIONS (50)
  - Metabolic function test abnormal [Unknown]
  - Oxygen saturation decreased [Unknown]
  - Pain in jaw [Unknown]
  - Presyncope [Unknown]
  - Malaise [Unknown]
  - Adverse drug reaction [Unknown]
  - Weight decreased [Unknown]
  - Anaemia [Unknown]
  - Hypotension [Unknown]
  - Dehydration [Recovering/Resolving]
  - Fluid overload [Unknown]
  - Dyspnoea [Unknown]
  - Fatigue [Unknown]
  - Pulmonary arterial pressure abnormal [Unknown]
  - Catheter site erythema [Unknown]
  - Pneumonia [Unknown]
  - Decreased appetite [Unknown]
  - Viral infection [Unknown]
  - Asthenia [Unknown]
  - Death [Fatal]
  - Myocardial infarction [Unknown]
  - Flushing [Unknown]
  - Abdominal pain upper [Unknown]
  - Dizziness [Unknown]
  - Temperature intolerance [Unknown]
  - Decreased activity [Unknown]
  - Catheter site pruritus [Unknown]
  - Dyspnoea exertional [Unknown]
  - Bronchitis [Recovering/Resolving]
  - Pneumonitis [Unknown]
  - Pleural effusion [Unknown]
  - Upper respiratory tract infection [Unknown]
  - Palpitations [Unknown]
  - Unevaluable event [Unknown]
  - Haemoglobin decreased [Unknown]
  - Condition aggravated [Unknown]
  - Pain [Unknown]
  - Chemotherapy [Recovered/Resolved]
  - Syncope [Recovering/Resolving]
  - Cough [Recovering/Resolving]
  - Diarrhoea [Unknown]
  - Feeling abnormal [Recovered/Resolved]
  - Headache [Recovered/Resolved]
  - Night sweats [Unknown]
  - Nasopharyngitis [Unknown]
  - Influenza [Recovering/Resolving]
  - Fluid retention [Unknown]
  - Nausea [Unknown]
  - Anxiety [Unknown]
  - Interstitial lung disease [Unknown]

NARRATIVE: CASE EVENT DATE: 201812
